FAERS Safety Report 4429377-8 (Version None)
Quarter: 2004Q3

REPORT INFORMATION
  Report Type: 
  Country: None (occurrence: None)
  Receive Date: 20040818
  Receipt Date: 20040818
  Transmission Date: 20050211
  Serious: Yes (Hospitalization)
  Sender: FDA-Public Use
  Company Number: None

PATIENT
  Age: 63 Year
  Sex: Female

DRUGS (2)
  1. CASODEX [Suspect]
     Indication: PROSTATE CANCER
     Dosage: SEE ABOVE
     Dates: start: 20040415, end: 20040817
  2. ZOLADEX [Suspect]
     Dates: start: 20040415, end: 20040705

REACTIONS (2)
  - BLOOD URINE [None]
  - DYSURIA [None]
